FAERS Safety Report 5605435-7 (Version None)
Quarter: 2008Q1

REPORT INFORMATION
  Report Type: 
  Country: None (occurrence: None)
  Receive Date: 20080125
  Receipt Date: 20080125
  Transmission Date: 20080703
  Serious: Yes (Other)
  Sender: FDA-Public Use
  Company Number: None

PATIENT
  Age: 81 Year
  Sex: Female
  Weight: 45.5 kg

DRUGS (2)
  1. ZOSYN [Suspect]
     Indication: PSEUDOMONAS INFECTION
     Dosage: 100 ML EVERY 8 HOURS IV DRIP
     Route: 041
     Dates: start: 20071204, end: 20071208
  2. ZOSYN [Suspect]
     Indication: URINARY TRACT INFECTION
     Dosage: 100 ML EVERY 8 HOURS IV DRIP
     Route: 041
     Dates: start: 20071204, end: 20071208

REACTIONS (1)
  - STEVENS-JOHNSON SYNDROME [None]
